FAERS Safety Report 6332195-7 (Version None)
Quarter: 2009Q3

REPORT INFORMATION
  Report Type: 
  Country: None (occurrence: None)
  Receive Date: 20090828
  Receipt Date: 20090819
  Transmission Date: 20100115
  Serious: Yes (Life-Threatening, Hospitalization)
  Sender: FDA-Public Use
  Company Number: JP-ASTRAZENECA-2009SE01637

PATIENT
  Sex: Male
  Weight: 82 kg

DRUGS (2)
  1. ECARD [Suspect]
     Indication: HYPERTENSION
     Route: 048
     Dates: start: 20090324, end: 20090406
  2. ZYLORIC [Concomitant]
     Indication: HYPERURICAEMIA
     Route: 048
     Dates: start: 20090128, end: 20090406

REACTIONS (3)
  - ACUTE CORONARY SYNDROME [None]
  - CARDIAC ARREST [None]
  - VENTRICULAR FIBRILLATION [None]
